FAERS Safety Report 5751904-9 (Version None)
Quarter: 2008Q2

REPORT INFORMATION
  Report Type: 
  Country: None (occurrence: None)
  Receive Date: 20080529
  Receipt Date: 20080529
  Transmission Date: 20081010
  Serious: Yes (Life-Threatening, Hospitalization)
  Sender: FDA-Public Use
  Company Number: None

PATIENT
  Age: 74 Year
  Sex: Male
  Weight: 86.1834 kg

DRUGS (4)
  1. HEP-LOCK [Suspect]
     Indication: CENTRAL VENOUS CATHETERISATION
     Dosage: DAILY/ AS NEEDED TO CLEAR LINE DAILY-PICC/CENTRA
     Dates: start: 20070415, end: 20070629
  2. HEP-LOCK [Suspect]
     Indication: PARENTERAL NUTRITION
     Dosage: DAILY/ AS NEEDED TO CLEAR LINE DAILY-PICC/CENTRA
     Dates: start: 20070415, end: 20070629
  3. SODIUM CHLORIDE INJ [Suspect]
     Indication: CENTRAL VENOUS CATHETERISATION
     Dosage: DAILY/ FLUSH AS NEEDED TO CHAN DAILY-PICC/CENTRAL
     Dates: start: 20070415, end: 20070629
  4. SODIUM CHLORIDE INJ [Suspect]
     Indication: PARENTERAL NUTRITION
     Dosage: DAILY/ FLUSH AS NEEDED TO CHAN DAILY-PICC/CENTRAL
     Dates: start: 20070415, end: 20070629

REACTIONS (8)
  - ABDOMINAL PAIN [None]
  - CATHETER RELATED COMPLICATION [None]
  - DYSPNOEA [None]
  - HYPOTENSION [None]
  - INFECTION [None]
  - NAUSEA [None]
  - SEPTIC SHOCK [None]
  - VOMITING [None]
